FAERS Safety Report 22086041 (Version 1)
Quarter: 2023Q1

REPORT INFORMATION
  Report Type: Spontaneous
  Country: US (occurrence: US)
  Receive Date: 20230310
  Receipt Date: 20230310
  Transmission Date: 20230418
  Serious: Yes (Death)
  Sender: FDA-Public Use
  Company Number: US-AMERICAN REGENT INC-2023000596

PATIENT
  Age: 30 Year
  Sex: Male

DRUGS (2)
  1. OLANZAPINE [Suspect]
     Active Substance: OLANZAPINE
     Indication: Product used for unknown indication
     Dosage: UNK
     Route: 065
     Dates: start: 2021, end: 2021
  2. RIZATRIPTAN [Suspect]
     Active Substance: RIZATRIPTAN
     Indication: Product used for unknown indication
     Dosage: UNK
     Route: 065

REACTIONS (9)
  - Toxicity to various agents [Fatal]
  - Anticholinergic syndrome [Fatal]
  - Tachycardia [Fatal]
  - Respiratory depression [Fatal]
  - Coma [Fatal]
  - Depressed level of consciousness [Fatal]
  - Hyperreflexia [Fatal]
  - Clonus [Fatal]
  - Tremor [Fatal]

NARRATIVE: CASE EVENT DATE: 20210101
